FAERS Safety Report 8372763-4 (Version None)
Quarter: 2012Q2

REPORT INFORMATION
  Report Type: 
  Country: None (occurrence: None)
  Receive Date: 20120521
  Receipt Date: 20120516
  Transmission Date: 20120825
  Serious: Yes (Death, Disabling)
  Sender: FDA-Public Use
  Company Number: US-ASTELLAS-2012US003523

PATIENT
  Sex: Male

DRUGS (17)
  1. SCOPOLAMINE [Concomitant]
     Indication: PRODUCT USED FOR UNKNOWN INDICATION
     Dosage: 1.5 MG, Q3D
     Route: 062
  2. CALCIUM CARBONATE [Concomitant]
     Indication: PRODUCT USED FOR UNKNOWN INDICATION
     Dosage: 500 MG, UNKNOWN/D
     Route: 065
  3. ATIVAN [Concomitant]
     Dosage: 1 MG, UNKNOWN/D
     Route: 065
  4. GUAITUSSIN AC [Concomitant]
     Indication: PRODUCT USED FOR UNKNOWN INDICATION
     Dosage: UNK, 10 MG-100 MG/5 ML, UNKNOWN/D
     Route: 048
  5. TESSALON [Concomitant]
     Indication: PRODUCT USED FOR UNKNOWN INDICATION
     Dosage: 100 MG, UNKNOWN/D
     Route: 065
  6. IMODIUM A-D [Concomitant]
     Indication: PRODUCT USED FOR UNKNOWN INDICATION
     Dosage: 2 MG, UNKNOWN/D
     Route: 065
  7. LORAZEPAM [Concomitant]
     Indication: PRODUCT USED FOR UNKNOWN INDICATION
     Dosage: 1 MG, UNKNOWN/D
     Route: 065
  8. ERLOTINIB HYDROCHLORIDE [Suspect]
     Indication: PANCREATIC CARCINOMA METASTATIC
     Dosage: 100 MG, UID/QD
     Route: 048
     Dates: start: 20120207
  9. ATIVAN [Concomitant]
     Indication: PRODUCT USED FOR UNKNOWN INDICATION
     Dosage: 0.5 MG, UNKNOWN/D
     Route: 065
  10. BENADRYL [Concomitant]
     Indication: PRODUCT USED FOR UNKNOWN INDICATION
     Dosage: 25 MG, UNKNOWN/D
     Route: 065
  11. CLINDAMYCIN [Concomitant]
     Indication: PRODUCT USED FOR UNKNOWN INDICATION
     Dosage: 1 %, UNKNOWN/D
     Route: 061
  12. MORPHINE SULFATE [Suspect]
     Indication: PRODUCT USED FOR UNKNOWN INDICATION
     Dosage: UNK, 100 MG/5 ML (20 MG/ML), UNKNOWN/D
     Route: 048
  13. OXYCODONE HCL [Suspect]
     Indication: PRODUCT USED FOR UNKNOWN INDICATION
     Dosage: 5 MG, UNKNOWN/D
     Route: 065
  14. SPIRONOLACTONE [Concomitant]
     Indication: PRODUCT USED FOR UNKNOWN INDICATION
     Dosage: 50 MG, UNKNOWN/D
     Route: 065
  15. REMERON [Concomitant]
     Indication: PRODUCT USED FOR UNKNOWN INDICATION
     Dosage: 15 MG, UNKNOWN/D
     Route: 065
  16. SENOKOT [Concomitant]
     Indication: PRODUCT USED FOR UNKNOWN INDICATION
     Dosage: 8.6 MG, UNKNOWN/D
     Route: 065
  17. PROCHLORPERAZINE MALEATE [Concomitant]
     Indication: PRODUCT USED FOR UNKNOWN INDICATION
     Dosage: 10 MG, UNKNOWN/D
     Route: 065

REACTIONS (24)
  - PAIN [None]
  - DRUG ERUPTION [None]
  - ALOPECIA [None]
  - ASTHENIA [None]
  - DEPRESSION [None]
  - ASCITES [None]
  - NEOPLASM MALIGNANT [None]
  - HEPATOSPLENOMEGALY [None]
  - CACHEXIA [None]
  - DECREASED APPETITE [None]
  - DYSPNOEA [None]
  - SOMNOLENCE [None]
  - NAUSEA [None]
  - ANXIETY [None]
  - AGITATION [None]
  - URINE OUTPUT DECREASED [None]
  - WEIGHT DECREASED [None]
  - LETHARGY [None]
  - JAUNDICE [None]
  - CONSTIPATION [None]
  - BRONCHITIS [None]
  - FATIGUE [None]
  - HALLUCINATION [None]
  - FLUID RETENTION [None]
